FAERS Safety Report 21003318 (Version 1)
Quarter: 2022Q2

REPORT INFORMATION
  Report Type: Spontaneous
  Country: US (occurrence: None)
  Receive Date: 20220623
  Receipt Date: 20220623
  Transmission Date: 20220721
  Serious: Yes (Other)
  Sender: FDA-Public Use
  Company Number: None

PATIENT
  Age: 55 Year
  Sex: Female
  Weight: 72 kg

DRUGS (6)
  1. DULOXETINE HYDROCHLORIDE [Suspect]
     Active Substance: DULOXETINE HYDROCHLORIDE
     Indication: Anxiety
     Dosage: OTHER QUANTITY : 1 CAPSULE(S);?FREQUENCY : AT BEDTIME;?
     Route: 048
  2. UNSPECIFIED INGREDIENT [Concomitant]
     Active Substance: UNSPECIFIED INGREDIENT
  3. ATIVAN [Concomitant]
     Active Substance: LORAZEPAM
  4. MELATONIN [Concomitant]
     Active Substance: MELATONIN
  5. MAGNESIUM [Concomitant]
     Active Substance: MAGNESIUM
  6. THEANINE [Concomitant]
     Active Substance: THEANINE

REACTIONS (10)
  - Headache [None]
  - Hot flush [None]
  - Paraesthesia [None]
  - Pruritus [None]
  - Contusion [None]
  - Contusion [None]
  - Migraine [None]
  - Withdrawal syndrome [None]
  - Muscle tightness [None]
  - Emotional disorder [None]

NARRATIVE: CASE EVENT DATE: 20220621
